FAERS Safety Report 5376676-1 (Version None)
Quarter: 2007Q2

REPORT INFORMATION
  Report Type: 
  Country: None (occurrence: None)
  Receive Date: 20070629
  Receipt Date: 20070621
  Transmission Date: 20071010
  Serious: Yes (Hospitalization)
  Sender: FDA-Public Use
  Company Number: 200714706GDDC

PATIENT
  Age: 62 Year
  Sex: Male
  Weight: 70 kg

DRUGS (2)
  1. MITOXANTRONE [Suspect]
     Indication: PROSTATE CANCER
     Dosage: 20 MG CYC IV
     Route: 042
     Dates: start: 20070510, end: 20070510
  2. PREDNISONE [Suspect]
     Indication: PROSTATE CANCER
     Dosage: QD PO
     Route: 048

REACTIONS (3)
  - CALCULUS BLADDER [None]
  - URINARY TRACT INFECTION [None]
  - WHITE BLOOD CELL COUNT DECREASED [None]
